FAERS Safety Report 26009645 (Version 1)
Quarter: 2025Q4

REPORT INFORMATION
  Report Type: Spontaneous
  Country: US (occurrence: US)
  Receive Date: 20251107
  Receipt Date: 20251107
  Transmission Date: 20260117
  Serious: No
  Sender: HIKMA
  Company Number: US-HIKMA PHARMACEUTICALS USA INC.-US-H14001-24-03237

PATIENT
  Age: 62 Year
  Sex: Female
  Weight: 53.51 kg

DRUGS (1)
  1. FLUTICASONE PROPIONATE [Suspect]
     Active Substance: FLUTICASONE PROPIONATE
     Indication: Nasal pruritus
     Dosage: 50 MICROGRAM IN EACH NOSTRIL, QD, PRN
     Route: 045
     Dates: start: 202401, end: 20240324

REACTIONS (4)
  - Metamorphopsia [Not Recovered/Not Resolved]
  - Wrong technique in product usage process [Unknown]
  - Underdose [Unknown]
  - Product dose omission issue [Unknown]

NARRATIVE: CASE EVENT DATE: 20240324
